FAERS Safety Report 15704761 (Version 4)
Quarter: 2019Q1

REPORT INFORMATION
  Report Type: Spontaneous
  Country: US (occurrence: US)
  Receive Date: 20181210
  Receipt Date: 20190104
  Transmission Date: 20190417
  Serious: Yes (Hospitalization, Other)
  Sender: FDA-Public Use
  Company Number: US-PFIZER INC-2018499372

PATIENT

DRUGS (9)
  1. MORPHINE [Concomitant]
     Active Substance: MORPHINE
     Dosage: UNK
     Route: 064
  2. AMPHETAMINE [Concomitant]
     Active Substance: AMPHETAMINE
     Dosage: UNK
     Route: 064
  3. METHAMPHETAMINE [Concomitant]
     Active Substance: METHAMPHETAMINE
     Dosage: UNK
     Route: 064
  4. PROMETHAZINE [Concomitant]
     Active Substance: PROMETHAZINE\PROMETHAZINE HYDROCHLORIDE
     Dosage: UNK
     Route: 064
  5. NALOXONE [Concomitant]
     Active Substance: NALOXONE
     Dosage: UNK
     Route: 064
  6. NEURONTIN [Suspect]
     Active Substance: GABAPENTIN
     Dosage: UNK
     Route: 064
  7. SUBUTEX [Concomitant]
     Active Substance: BUPRENORPHINE HYDROCHLORIDE
     Dosage: UNK
     Route: 064
  8. FENTANYL. [Concomitant]
     Active Substance: FENTANYL
     Dosage: UNK
     Route: 064
  9. COCAINE [Concomitant]
     Active Substance: COCAINE
     Dosage: UNK
     Route: 064

REACTIONS (8)
  - Foetal exposure during pregnancy [Unknown]
  - Nystagmus [Recovering/Resolving]
  - Movement disorder [Unknown]
  - Diarrhoea neonatal [Unknown]
  - Drug withdrawal syndrome neonatal [Unknown]
  - Infantile back arching [Unknown]
  - Protrusion tongue [Unknown]
  - Gastrooesophageal reflux disease [Unknown]
